FAERS Safety Report 9276761 (Version 3)
Quarter: 2013Q3

REPORT INFORMATION
  Report Type: Spontaneous
  Country: US (occurrence: US)
  Receive Date: 20130507
  Receipt Date: 20130731
  Transmission Date: 20140515
  Serious: No
  Sender: FDA-Public Use
  Company Number: US-ELI_LILLY_AND_COMPANY-US201304008530

PATIENT
  Sex: Male
  Weight: 74.83 kg

DRUGS (7)
  1. CIALIS [Suspect]
     Indication: PULMONARY ARTERIAL HYPERTENSION
     Dosage: 1 DF, UNKNOWN
     Route: 048
  2. FLOLAN [Concomitant]
     Indication: PULMONARY ARTERIAL HYPERTENSION
     Dosage: 68.5 NG, OTHER
     Route: 042
     Dates: start: 19991007
  3. FLOLAN [Concomitant]
     Dosage: 71.5 DF, UNK
     Route: 042
  4. TRACLEER [Concomitant]
     Dosage: 1 DF, UNKNOWN
     Route: 065
  5. DIGOXIN [Concomitant]
     Dosage: 1 DF, UNKNOWN
     Route: 065
  6. WARFARIN SODIUM [Concomitant]
     Dosage: 1 DF, UNKNOWN
     Route: 065
  7. SILDENAFIL CITRATE [Concomitant]
     Dosage: 1 DF, UNKNOWN
     Route: 065

REACTIONS (3)
  - Epistaxis [Unknown]
  - Headache [Recovered/Resolved]
  - Off label use [Unknown]
